FAERS Safety Report 17031977 (Version 1)
Quarter: 2019Q4

REPORT INFORMATION
  Report Type: Spontaneous
  Country: US (occurrence: US)
  Receive Date: 20191113
  Receipt Date: 20191113
  Transmission Date: 20200122
  Serious: No
  Sender: FDA-Public Use
  Company Number: None

PATIENT
  Age: 37 Year
  Sex: Female
  Weight: 76.5 kg

DRUGS (13)
  1. BAQSIMI [Suspect]
     Active Substance: GLUCAGON
     Indication: HYPOGLYCAEMIA
     Dosage: ?          OTHER FREQUENCY:AS NEEDED;OTHER ROUTE:NASAL?
     Dates: start: 20191029, end: 20191029
  2. ATORVASTATIN [Concomitant]
     Active Substance: ATORVASTATIN
  3. VYVANSE [Concomitant]
     Active Substance: LISDEXAMFETAMINE DIMESYLATE
  4. TECFIDERA [Concomitant]
     Active Substance: DIMETHYL FUMARATE
  5. XANAX [Concomitant]
     Active Substance: ALPRAZOLAM
  6. HUMALOG [Concomitant]
     Active Substance: INSULIN LISPRO
  7. FARXIGA [Concomitant]
     Active Substance: DAPAGLIFLOZIN PROPANEDIOL
  8. BIOTIN [Concomitant]
     Active Substance: BIOTIN
  9. INSULIN [Concomitant]
     Active Substance: INSULIN NOS
  10. GLUCAGON. [Concomitant]
     Active Substance: GLUCAGON
  11. MULTIVITAMIN [Concomitant]
     Active Substance: VITAMINS
  12. TRINTELLIX [Concomitant]
     Active Substance: VORTIOXETINE HYDROBROMIDE
  13. VITAMIN D3 [Concomitant]
     Active Substance: CHOLECALCIFEROL

REACTIONS (3)
  - Nausea [None]
  - Headache [None]
  - Complication associated with device [None]

NARRATIVE: CASE EVENT DATE: 20191029
